FAERS Safety Report 25794407 (Version 1)
Quarter: 2025Q3

REPORT INFORMATION
  Report Type: Report from Study
  Country: US (occurrence: US)
  Receive Date: 20250912
  Receipt Date: 20250912
  Transmission Date: 20251021
  Serious: Yes (Other)
  Sender: pharmaAND
  Company Number: US-Pharmaand-2025000984

PATIENT
  Sex: Female

DRUGS (1)
  1. RUBRACA [Suspect]
     Active Substance: RUCAPARIB CAMSYLATE
     Indication: Pancreatic carcinoma
     Dosage: 600 MG TWICE A DAY
     Route: 048

REACTIONS (6)
  - Neuropathy peripheral [Not Recovered/Not Resolved]
  - Back pain [Recovering/Resolving]
  - Fall [Recovering/Resolving]
  - Back injury [Recovering/Resolving]
  - Carbohydrate antigen 19-9 increased [Unknown]
  - Off label use [Recovered/Resolved]
